FAERS Safety Report 9487021 (Version 1)
Quarter: 2013Q3

REPORT INFORMATION
  Report Type: Spontaneous
  Country: FR (occurrence: FR)
  Receive Date: 20130829
  Receipt Date: 20130829
  Transmission Date: 20140515
  Serious: Yes (Hospitalization)
  Sender: FDA-Public Use
  Company Number: FR-GLAXOSMITHKLINE-B0918634A

PATIENT
  Age: 59 Year
  Sex: Female

DRUGS (1)
  1. SORIATANE [Suspect]
     Indication: PSORIASIS
     Route: 048
     Dates: start: 20121215, end: 2013

REACTIONS (2)
  - Diverticulitis [Not Recovered/Not Resolved]
  - Abscess intestinal [Not Recovered/Not Resolved]
